FAERS Safety Report 7083531-8 (Version None)
Quarter: 2010Q4

REPORT INFORMATION
  Report Type: 
  Country: None (occurrence: None)
  Receive Date: 20101103
  Receipt Date: 20101103
  Transmission Date: 20110411
  Serious: Yes (Hospitalization)
  Sender: FDA-Public Use
  Company Number: None

PATIENT
  Age: 75 Year
  Sex: Male
  Weight: 115.4 kg

DRUGS (9)
  1. TORISEL [Suspect]
     Indication: PROSTATE CANCER
     Dosage: 25MG Q WEEK IV
     Route: 042
     Dates: start: 20100511, end: 20101019
  2. TYLENOL (CAPLET) [Concomitant]
  3. NORCO [Concomitant]
  4. CIPRO [Concomitant]
  5. CLONAZEPAM [Concomitant]
  6. LEXAPRO [Concomitant]
  7. HYDROCHLOROTHIAZIDE [Concomitant]
  8. SIMVASTATIN [Concomitant]
  9. NIACIN [Concomitant]

REACTIONS (2)
  - THROMBOSIS [None]
  - URINARY RETENTION [None]
